FAERS Safety Report 4965835-5 (Version None)
Quarter: 2006Q2

REPORT INFORMATION
  Report Type: 
  Country: None (occurrence: None)
  Receive Date: 20060405
  Receipt Date: 20060405
  Transmission Date: 20061013
  Serious: Yes (Life-Threatening, Other)
  Sender: FDA-Public Use
  Company Number: None

PATIENT
  Age: 45 Year
  Sex: Female

DRUGS (2)
  1. CLEO INFUSION SET   24IN/61CM TUBING SMITHS MEDICAL MD [Suspect]
     Indication: DIABETES MELLITUS
     Dosage: BASAL RATE AND BOLUS RATE   CONTINUOUS   SQ
     Dates: start: 20060120, end: 20060327
  2. DELTEC INSULIN PUMP [Concomitant]

REACTIONS (10)
  - ASTHENIA [None]
  - BLOOD GLUCOSE INCREASED [None]
  - DEVICE FAILURE [None]
  - DEVICE OCCLUSION [None]
  - FATIGUE [None]
  - INFUSION RELATED REACTION [None]
  - LETHARGY [None]
  - MALAISE [None]
  - NAUSEA [None]
  - PHARMACEUTICAL PRODUCT COMPLAINT [None]
